FAERS Safety Report 16413975 (Version 6)
Quarter: 2025Q4

REPORT INFORMATION
  Report Type: Spontaneous
  Country: EU (occurrence: EU)
  Receive Date: 20190611
  Receipt Date: 20251021
  Transmission Date: 20260117
  Serious: Yes (Death, Hospitalization, Other)
  Sender: AUROBINDO
  Company Number: EU-AUROBINDO-AUR-APL-2019-031448

PATIENT
  Age: 9 Year
  Sex: Male

DRUGS (29)
  1. FLUDARABINE [Suspect]
     Active Substance: FLUDARABINE PHOSPHATE
     Indication: Immunosuppressant drug therapy
     Dosage: 30 MILLIGRAM/SQ. METER
     Route: 065
  2. FLUDARABINE [Suspect]
     Active Substance: FLUDARABINE PHOSPHATE
     Indication: Allogenic stem cell transplantation
  3. MELPHALAN [Suspect]
     Active Substance: MELPHALAN
     Indication: Immunosuppression
     Dosage: 70 MILLIGRAM/SQ. METER, ONCE A DAY
     Route: 065
  4. PREDNISONE [Suspect]
     Active Substance: PREDNISONE
     Indication: Immunosuppressant drug therapy
     Dosage: 0.3 MILLIGRAM/KILOGRAM, ONCE A DAY(0.3 MG/KG/DAY)
     Route: 065
  5. PREDNISONE [Suspect]
     Active Substance: PREDNISONE
     Indication: Prophylaxis against transplant rejection
  6. ALEMTUZUMAB [Suspect]
     Active Substance: ALEMTUZUMAB
     Indication: Bone marrow conditioning regimen
     Dosage: 0.5 MILLIGRAM/KILOGRAM
     Route: 065
  7. MYCOPHENOLATE MOFETIL [Suspect]
     Active Substance: MYCOPHENOLATE MOFETIL
     Indication: Immunosuppressant drug therapy
     Dosage: UNK
     Route: 065
  8. MYCOPHENOLATE MOFETIL [Suspect]
     Active Substance: MYCOPHENOLATE MOFETIL
     Indication: Prophylaxis against graft versus host disease
  9. CYCLOPHOSPHAMIDE [Suspect]
     Active Substance: CYCLOPHOSPHAMIDE
     Indication: Immunosuppressant drug therapy
     Dosage: 50 MILLIGRAM/KILOGRAM, ONCE A DAY
     Route: 065
  10. CYCLOPHOSPHAMIDE [Suspect]
     Active Substance: CYCLOPHOSPHAMIDE
     Indication: Bone marrow conditioning regimen
  11. CYCLOPHOSPHAMIDE [Suspect]
     Active Substance: CYCLOPHOSPHAMIDE
     Indication: Allogenic stem cell transplantation
  12. PREDNISONE [Suspect]
     Active Substance: PREDNISONE
     Indication: Prophylaxis against graft versus host disease
     Dosage: 0.3 MILLIGRAM/KILOGRAM
     Route: 065
  13. TACROLIMUS [Suspect]
     Active Substance: TACROLIMUS
     Indication: Immunosuppressant drug therapy
     Dosage: UNK
     Route: 065
  14. TREOSULFAN [Suspect]
     Active Substance: TREOSULFAN
     Indication: Immunosuppressant drug therapy
     Dosage: 14000 MILLIGRAM/SQ. METER
     Route: 065
  15. TREOSULFAN [Suspect]
     Active Substance: TREOSULFAN
     Indication: Allogenic stem cell transplantation
  16. BASILIXIMAB [Suspect]
     Active Substance: BASILIXIMAB
     Indication: Immunosuppressant drug therapy
     Dosage: UNK
     Route: 065
  17. THYMOCYTE IMMUNE GLOBULIN NOS [Suspect]
     Active Substance: THYMOCYTE IMMUNE GLOBULIN NOS
     Indication: Bone marrow conditioning regimen
     Dosage: UNK
     Route: 065
  18. POLYMYXIN [Concomitant]
     Active Substance: POLYMYXIN
     Indication: Infection prophylaxis
     Dosage: UNK
     Route: 065
  19. POLYMYXIN [Concomitant]
     Active Substance: POLYMYXIN
     Indication: Prophylaxis
  20. AMPHOTERICIN B [Concomitant]
     Active Substance: AMPHOTERICIN B
     Indication: Infection prophylaxis
     Dosage: UNK
     Route: 065
  21. PENTAMIDINE [Concomitant]
     Active Substance: PENTAMIDINE
     Indication: Infection prophylaxis
     Dosage: UNK
     Route: 055
  22. PREDNISONE ACETATE [Concomitant]
     Active Substance: PREDNISONE ACETATE
     Indication: Prophylaxis against transplant rejection
     Dosage: UNK
     Route: 065
  23. DEFIBROTIDE [Concomitant]
     Active Substance: DEFIBROTIDE (BOVINE)
     Indication: Prophylaxis
     Dosage: UNK
     Route: 065
  24. VALACYCLOVIR HYDROCHLORIDE [Concomitant]
     Active Substance: VALACYCLOVIR HYDROCHLORIDE
     Indication: Product used for unknown indication
     Dosage: UNK
     Route: 065
  25. URSODIOL [Concomitant]
     Active Substance: URSODIOL
     Indication: Product used for unknown indication
     Dosage: UNK
     Route: 065
  26. CHENODIOL [Concomitant]
     Active Substance: CHENODIOL
     Indication: Product used for unknown indication
     Dosage: UNK
     Route: 065
  27. NEOMYCIN [Concomitant]
     Active Substance: NEOMYCIN
     Indication: Prophylaxis
     Dosage: UNK
     Route: 065
  28. HEMATIN [Concomitant]
     Active Substance: HEMATIN
     Indication: Product used for unknown indication
     Dosage: UNK
     Route: 065
  29. Immunoglobulin [Concomitant]
     Indication: Infection prophylaxis
     Dosage: UNK
     Route: 065

REACTIONS (26)
  - Herpes zoster disseminated [Fatal]
  - Varicella zoster virus infection [Fatal]
  - Infection in an immunocompromised host [Fatal]
  - Multiple organ dysfunction syndrome [Fatal]
  - Herpes zoster [Fatal]
  - Respiratory failure [Fatal]
  - Optic neuritis [Fatal]
  - Cytomegalovirus infection [Fatal]
  - Retinitis [Fatal]
  - Staphylococcal skin infection [Unknown]
  - Gastroenteritis viral [Unknown]
  - Staphylococcal scalded skin syndrome [Unknown]
  - Varicella virus test positive [Unknown]
  - Adenovirus infection [Unknown]
  - Human bocavirus infection [Unknown]
  - Otitis media bacterial [Unknown]
  - Renal failure [Unknown]
  - Vanishing bile duct syndrome [Recovering/Resolving]
  - Anaphylactic shock [Recovered/Resolved]
  - Dehydration [Unknown]
  - Lymphopenia [Unknown]
  - Ear infection [Unknown]
  - Gastrointestinal infection [Unknown]
  - Visual impairment [Unknown]
  - Off label use [Unknown]
  - Vision blurred [Unknown]
